FAERS Safety Report 5695592-9 (Version None)
Quarter: 2008Q2

REPORT INFORMATION
  Report Type: 
  Country: None (occurrence: None)
  Receive Date: 20080407
  Receipt Date: 20080306
  Transmission Date: 20081010
  Serious: No
  Sender: FDA-Public Use
  Company Number: PR-BAYER-200716806NA

PATIENT
  Age: 26 Year
  Sex: Female

DRUGS (3)
  1. AVELOX [Suspect]
     Indication: DRUG USE FOR UNKNOWN INDICATION
     Route: 048
     Dates: start: 20071201
  2. ADVAIR HFA [Concomitant]
  3. PROVENTIL-HFA [Concomitant]

REACTIONS (1)
  - SKIN LESION [None]
